FAERS Safety Report 14189088 (Version 1)
Quarter: 2017Q4

REPORT INFORMATION
  Report Type: Spontaneous
  Country: US (occurrence: US)
  Receive Date: 20171115
  Receipt Date: 20171115
  Transmission Date: 20180321
  Serious: Yes (Other)
  Sender: FDA-Public Use
  Company Number: US-SUN PHARMACEUTICAL INDUSTRIES LTD-2017US-154578

PATIENT
  Age: 56 Year
  Sex: Female

DRUGS (1)
  1. PREDNISONE. [Suspect]
     Active Substance: PREDNISONE
     Indication: SELECTIVE IGA IMMUNODEFICIENCY
     Dosage: UNK
     Route: 065
     Dates: start: 201309, end: 201412

REACTIONS (2)
  - Interstitial lung disease [Recovering/Resolving]
  - Splenic lesion [Recovering/Resolving]

NARRATIVE: CASE EVENT DATE: 201311
